FAERS Safety Report 18201685 (Version 1)
Quarter: 2020Q3

REPORT INFORMATION
  Report Type: Spontaneous
  Country: JP (occurrence: JP)
  Receive Date: 20200827
  Receipt Date: 20200827
  Transmission Date: 20201103
  Serious: Yes (Other)
  Sender: FDA-Public Use
  Company Number: JP-PFIZER INC-2020328896

PATIENT
  Age: 71 Year
  Sex: Male

DRUGS (1)
  1. DOXYCYCLINE HYCLATE. [Suspect]
     Active Substance: DOXYCYCLINE HYCLATE
     Indication: MYCOBACTERIAL INFECTION
     Dosage: UNK

REACTIONS (3)
  - Lupus-like syndrome [Recovered/Resolved]
  - Off label use [Unknown]
  - Product use in unapproved indication [Unknown]
